FAERS Safety Report 4427780-3 (Version None)
Quarter: 2004Q3

REPORT INFORMATION
  Report Type: 
  Country: None (occurrence: None)
  Receive Date: 20040816
  Receipt Date: 20040816
  Transmission Date: 20050211
  Serious: Yes (Death)
  Sender: FDA-Public Use
  Company Number: None

PATIENT
  Age: 72 Year
  Sex: Female
  Weight: 47.6277 kg

DRUGS (1)
  1. BEVACIZUMAB [Suspect]
     Indication: MESOTHELIOMA
     Dates: start: 20031216, end: 20040219

REACTIONS (2)
  - CARDIAC DISORDER [None]
  - SUDDEN DEATH [None]
